FAERS Safety Report 12085180 (Version 1)
Quarter: 2016Q1

REPORT INFORMATION
  Report Type: Spontaneous
  Country: DE (occurrence: DE)
  Receive Date: 20160217
  Receipt Date: 20160217
  Transmission Date: 20160526
  Serious: Yes (Death, Hospitalization, Other)
  Sender: FDA-Public Use
  Company Number: DE-JNJFOC-20160213824

PATIENT
  Age: 77 Year
  Sex: Female
  Weight: 105 kg

DRUGS (6)
  1. XARELTO [Suspect]
     Active Substance: RIVAROXABAN
     Indication: CEREBROVASCULAR ACCIDENT PROPHYLAXIS
     Route: 048
     Dates: start: 201305, end: 201512
  2. XARELTO [Suspect]
     Active Substance: RIVAROXABAN
     Indication: ATRIAL FIBRILLATION
     Route: 048
     Dates: start: 201305, end: 201512
  3. METOPROLOL. [Concomitant]
     Active Substance: METOPROLOL
     Route: 048
  4. FLECAINID ALPHARMA [Concomitant]
     Route: 048
  5. TAPENTADOL [Concomitant]
     Active Substance: TAPENTADOL
     Route: 065
  6. BERLTHYROX [Concomitant]
     Route: 048

REACTIONS (3)
  - Hypertensive crisis [Unknown]
  - Cerebral haemorrhage [Fatal]
  - Ventricle rupture [Fatal]

NARRATIVE: CASE EVENT DATE: 20151217
